FAERS Safety Report 4547103-9 (Version None)
Quarter: 2005Q1

REPORT INFORMATION
  Report Type: 
  Country: None (occurrence: None)
  Receive Date: 20050107
  Receipt Date: 20041118
  Transmission Date: 20050727
  Serious: Yes (Hospitalization)
  Sender: FDA-Public Use
  Company Number: 200413568JP

PATIENT
  Age: 63 Year
  Sex: Male
  Weight: 65 kg

DRUGS (2)
  1. TAXOTERE [Suspect]
     Indication: THYMOMA MALIGNANT
     Route: 041
     Dates: start: 20041006, end: 20041105
  2. BRIPLATIN [Suspect]
     Indication: THYMOMA MALIGNANT
     Route: 041
     Dates: start: 20041006, end: 20041105

REACTIONS (4)
  - ENTEROCOLITIS [None]
  - GASTRIC ULCER [None]
  - INTERSTITIAL LUNG DISEASE [None]
  - MELAENA [None]
